FAERS Safety Report 8960325 (Version 1)
Quarter: 2012Q4

REPORT INFORMATION
  Report Type: 
  Country: US (occurrence: US)
  Receive Date: 20121212
  Receipt Date: 20121212
  Transmission Date: 20130627
  Serious: Yes (Disabling, Other)
  Sender: FDA-Public Use
  Company Number: US-ELI_LILLY_AND_COMPANY-US201211009654

PATIENT
  Sex: Female

DRUGS (1)
  1. HUMALOG LISPRO [Suspect]
     Indication: TYPE 1 DIABETES MELLITUS
     Dosage: UNK UNK, tid

REACTIONS (4)
  - Renal failure [Not Recovered/Not Resolved]
  - Blood glucose increased [Recovered/Resolved]
  - Blindness [Not Recovered/Not Resolved]
  - Hypoaesthesia [Not Recovered/Not Resolved]
